FAERS Safety Report 8804055 (Version 2)
Quarter: 2012Q4

REPORT INFORMATION
  Report Type: Report from Study
  Country: DE (occurrence: DE)
  Receive Date: 20120924
  Receipt Date: 20121019
  Transmission Date: 20130627
  Serious: Yes (Hospitalization)
  Sender: FDA-Public Use
  Company Number: DE-PFIZER INC-2012229142

PATIENT
  Age: 71 Year
  Sex: Male
  Weight: 90 kg

DRUGS (8)
  1. IRINOTECAN HCL [Suspect]
     Indication: COLORECTAL CANCER METASTATIC
     Dosage: 165 mg/m2, UNK
     Dates: start: 20120718
  2. LEUCOVORIN [Suspect]
     Indication: COLORECTAL CANCER METASTATIC
     Dosage: 200 mg/m2, UNK
     Dates: start: 20120718, end: 20120912
  3. FLUOROURACIL [Suspect]
     Indication: COLORECTAL CANCER METASTATIC
     Dosage: 3200 mg/m2, UNK
     Dates: start: 20120718, end: 20120912
  4. BEVACIZUMAB [Suspect]
     Indication: COLORECTAL CANCER METASTATIC
     Dosage: 5 mg/kg, UNK
     Dates: start: 20120718, end: 20120912
  5. OXALIPLATIN [Suspect]
     Indication: COLORECTAL CANCER METASTATIC
     Dosage: 85 mg/m2, UNK
     Dates: start: 20120718, end: 20120912
  6. RIVAROXABAN [Concomitant]
     Indication: COAGULOPATHY
     Dosage: 20 mg, 1x/day
     Route: 048
  7. BISOPROLOL [Concomitant]
     Indication: HYPERTENSION
     Dosage: 5 mg, 2x/day
     Route: 048
  8. RAMIPRIL [Concomitant]
     Indication: HYPERTENSION
     Dosage: 5 mg, 2x/day
     Route: 048

REACTIONS (1)
  - Salmonellosis [Recovering/Resolving]
